FAERS Safety Report 8737118 (Version 2)
Quarter: 2014Q2

REPORT INFORMATION
  Report Type: Spontaneous
  Country: US (occurrence: US)
  Receive Date: 20120822
  Receipt Date: 20140627
  Transmission Date: 20141212
  Serious: No
  Sender: FDA-Public Use
  Company Number: US-ASTRAZENECA-2011SE57764

PATIENT
  Age: 58 Year
  Sex: Female
  Weight: 70.3 kg

DRUGS (3)
  1. SYMBICORT PMDI [Suspect]
     Indication: ASTHMA
     Dosage: TWO PUFFS BID
     Route: 055
  2. SYMBICORT PMDI [Suspect]
     Indication: ASTHMA
     Dosage: 160/4.5 MCG, ONE PUFF BID
     Route: 055
  3. PROVENTIL [Concomitant]
     Indication: DYSPNOEA
     Dosage: EVERY 4 HOURS

REACTIONS (5)
  - Adverse event [Unknown]
  - Dyspnoea [Unknown]
  - Sleep disorder due to general medical condition, insomnia type [Unknown]
  - Intentional product misuse [Unknown]
  - Intentional product misuse [Not Recovered/Not Resolved]
